FAERS Safety Report 9207004 (Version 1)
Quarter: 2013Q1

REPORT INFORMATION
  Report Type: Spontaneous
  Country: US (occurrence: None)
  Receive Date: 20120731
  Receipt Date: 20120731
  Transmission Date: 20140127
  Serious: No
  Sender: FDA-Public Use
  Company Number: 2012MZ000309

PATIENT
  Age: 55 Year
  Sex: Female

DRUGS (4)
  1. XEOMIN [Suspect]
     Indication: SKIN WRINKLING
     Dates: start: 20111111, end: 20111111
  2. VITAMIN C / 00008004/ [Concomitant]
  3. MULTIVITAMIN /02371501/ [Concomitant]
  4. FISH OIL [Concomitant]

REACTIONS (13)
  - Eye irritation [None]
  - Dehydration [None]
  - Urine output decreased [None]
  - Influenza like illness [None]
  - Chills [None]
  - Insomnia [None]
  - Feeling abnormal [None]
  - Eye pain [None]
  - Drug ineffective [None]
  - Nausea [None]
  - Asthenia [None]
  - Myalgia [None]
  - Off label use [None]
